FAERS Safety Report 9852449 (Version 1)
Quarter: 2014Q1

REPORT INFORMATION
  Report Type: Spontaneous
  Country: FR (occurrence: FR)
  Receive Date: 20140129
  Receipt Date: 20140129
  Transmission Date: 20141002
  Serious: Yes (Hospitalization)
  Sender: FDA-Public Use
  Company Number: FR-009507513-1401FRA008306

PATIENT
  Age: 65 Year
  Sex: Male

DRUGS (6)
  1. JANUMET [Suspect]
     Indication: TYPE 2 DIABETES MELLITUS
     Dosage: UNK
     Route: 048
     Dates: end: 2013
  2. TAHOR [Concomitant]
  3. PRAXILENE [Concomitant]
  4. ZOPICLONE [Concomitant]
  5. DIAMICRON [Concomitant]
  6. APROVEL [Concomitant]

REACTIONS (2)
  - Lactic acidosis [Unknown]
  - Gastroenteritis [Unknown]
